FAERS Safety Report 9100573 (Version 1)
Quarter: 2013Q1

REPORT INFORMATION
  Report Type: Spontaneous
  Country: FR (occurrence: FR)
  Receive Date: 20130215
  Receipt Date: 20130215
  Transmission Date: 20140127
  Serious: Yes (Hospitalization)
  Sender: FDA-Public Use
  Company Number: PHHY2013FR014710

PATIENT
  Age: 43 Year
  Sex: Male

DRUGS (3)
  1. TEGRETOL LP [Suspect]
     Indication: EPILEPSY
     Dosage: 400 MG 1 DF MORNING, 0.5 DF MIDDAY AND 1 DF EVENING
     Route: 048
  2. TEGRETOL LP [Suspect]
     Dosage: 3 DF QD
     Route: 048
     Dates: start: 20130103, end: 20130103
  3. KEPPRA [Concomitant]

REACTIONS (2)
  - Convulsion [Recovered/Resolved]
  - Medication error [Recovered/Resolved]
